FAERS Safety Report 20972841 (Version 1)
Quarter: 2022Q2

REPORT INFORMATION
  Report Type: Spontaneous
  Country: US (occurrence: US)
  Receive Date: 20220617
  Receipt Date: 20220617
  Transmission Date: 20220721
  Serious: No
  Sender: FDA-Public Use
  Company Number: US-STRIDES ARCOLAB LIMITED-2022SP001444

PATIENT
  Age: 56 Year
  Sex: Male

DRUGS (6)
  1. DEXAMETHASONE [Suspect]
     Active Substance: DEXAMETHASONE
     Indication: COVID-19 pneumonia
     Dosage: UNK
     Route: 065
  2. REMDESIVIR [Concomitant]
     Active Substance: REMDESIVIR
     Indication: COVID-19 pneumonia
     Dosage: UNK
     Route: 065
  3. ALTEPLASE [Concomitant]
     Active Substance: ALTEPLASE
     Indication: Right ventricular dysfunction
     Dosage: 100 MILLIGRAM, OVER 2 HRS (WITHOUT BOLUS DOSE)
     Route: 065
  4. EPOPROSTENOL [Concomitant]
     Active Substance: EPOPROSTENOL
     Indication: Hypoxia
     Dosage: UNK, (RESPIRATORY (INHALATION))
  5. NITROGLYCERIN [Concomitant]
     Active Substance: NITROGLYCERIN
     Indication: Right ventricular dysfunction
     Dosage: 2.4 MILLIGRAM, VIA INLINE CLOSED-CIRCUIT NEBULIZER OVER THE NEXT 60 MIN. (RESPIRATORY)
  6. NITROGLYCERIN [Concomitant]
     Active Substance: NITROGLYCERIN
     Dosage: UNK (RESUMED)
     Route: 065

REACTIONS (1)
  - Off label use [Unknown]
